FAERS Safety Report 6594315-9 (Version None)
Quarter: 2010Q1

REPORT INFORMATION
  Report Type: 
  Country: None (occurrence: None)
  Receive Date: 20100222
  Receipt Date: 20100210
  Transmission Date: 20100710
  Serious: Yes (Hospitalization)
  Sender: FDA-Public Use
  Company Number: US-PFIZER INC-2010017913

PATIENT
  Age: 62 Year
  Sex: Male
  Weight: 85 kg

DRUGS (1)
  1. SUNITINIB MALATE [Suspect]
     Indication: NON-SMALL CELL LUNG CANCER
     Dosage: 37.5 MG QD, CYCLE=21DAYS
     Route: 048
     Dates: start: 20090713, end: 20091105

REACTIONS (2)
  - OESOPHAGITIS [None]
  - VOMITING [None]
